FAERS Safety Report 4900756-5 (Version None)
Quarter: 2006Q1

REPORT INFORMATION
  Report Type: 
  Country: None (occurrence: None)
  Receive Date: 20060201
  Receipt Date: 20060116
  Transmission Date: 20060701
  Serious: Yes (Hospitalization)
  Sender: FDA-Public Use
  Company Number: FR200601002458

PATIENT
  Age: 69 Year
  Sex: Female

DRUGS (7)
  1. PROZAC [Suspect]
     Dosage: 20 MG, DAILY (1/D), ORAL
     Route: 048
     Dates: start: 20051115, end: 20051203
  2. MEPRONIZINE (ACEPROMETAZINE, MEPROBAMATE) [Concomitant]
  3. PROTHIADEN [Concomitant]
  4. RYTHMOL [Concomitant]
  5. ACETAMINOPHEN [Concomitant]
  6. ASPIRIN [Concomitant]
  7. XANAX [Concomitant]

REACTIONS (7)
  - BALANCE DISORDER [None]
  - CARDIAC FAILURE CONGESTIVE [None]
  - CARDIOGENIC SHOCK [None]
  - CARDIOMEGALY [None]
  - CONFUSIONAL STATE [None]
  - HEPATOCELLULAR DAMAGE [None]
  - ISCHAEMIC HEPATITIS [None]
